FAERS Safety Report 13462534 (Version 1)
Quarter: 2017Q2

REPORT INFORMATION
  Report Type: Spontaneous
  Country: US (occurrence: US)
  Receive Date: 20170420
  Receipt Date: 20170420
  Transmission Date: 20170830
  Serious: Yes (Other)
  Sender: FDA-Public Use
  Company Number: US-JNJFOC-20170409118

PATIENT
  Sex: Female

DRUGS (2)
  1. MOTRIN [Suspect]
     Active Substance: IBUPROFEN
     Route: 048
  2. MOTRIN [Suspect]
     Active Substance: IBUPROFEN
     Indication: ENDOMETRIOSIS
     Route: 048

REACTIONS (5)
  - Solar lentigo [Unknown]
  - Urine output increased [Unknown]
  - Gastric disorder [Unknown]
  - Overdose [Unknown]
  - Drug ineffective for unapproved indication [Unknown]
